FAERS Safety Report 5393100-3 (Version None)
Quarter: 2007Q3

REPORT INFORMATION
  Report Type: 
  Country: None (occurrence: None)
  Receive Date: 20070718
  Receipt Date: 20070427
  Transmission Date: 20080115
  Serious: Yes (Hospitalization)
  Sender: FDA-Public Use
  Company Number: 805#1#2007-00048

PATIENT
  Age: 83 Year
  Sex: Female

DRUGS (11)
  1. ALPROSTADIL [Suspect]
     Indication: ARTERIOSCLEROSIS OBLITERANS
     Dosage: 80 MCG (40 MCG 2 IN 1 DAY(S))
     Route: 041
     Dates: start: 20070417, end: 20070424
  2. CLONAZEPAM [Concomitant]
  3. NOLPORT (EXTRACT FROM INFLAMMATORY RABBIT SKIN INOCULATED BY VACCINA V [Suspect]
     Indication: SPINAL OSTEOARTHRITIS
     Dosage: 7.2
     Route: 041
     Dates: start: 20070417, end: 20070424
  4. KASHIWADOL (CHONDROITIN SULFATE SODIUM, SALICYLATE SODIUM) [Suspect]
     Indication: SPINAL OSTEOARTHRITIS
     Dosage: 40 MGL
     Route: 041
     Dates: start: 20070417, end: 20070424
  5. ETIZOLAM (ETIZOLAM) [Suspect]
     Indication: MENTAL DISORDER
     Dosage: .5 MG
     Route: 048
     Dates: start: 20070417
  6. FUROSEMIDE [Concomitant]
  7. SPIRONOLACTONE [Concomitant]
  8. TOCOPHERYL NICOTINATE (TOCOPHERYL NICOTINATE) [Concomitant]
  9. SENNOSIDE [Concomitant]
  10. ELCATONIN (ELCATONIN) [Concomitant]
  11. WARFARIN SODIUM [Concomitant]

REACTIONS (9)
  - ACTIVITIES OF DAILY LIVING IMPAIRED [None]
  - APATHY [None]
  - BACK PAIN [None]
  - EPIDERMOLYSIS [None]
  - MUSCULAR WEAKNESS [None]
  - NECK PAIN [None]
  - PAIN IN EXTREMITY [None]
  - PRURITUS [None]
  - RASH GENERALISED [None]
